FAERS Safety Report 8026912-8 (Version None)
Quarter: 2011Q4

REPORT INFORMATION
  Report Type: 
  Country: None (occurrence: None)
  Receive Date: 20111130
  Receipt Date: 20110707
  Transmission Date: 20120403
  Serious: Yes (Hospitalization)
  Sender: FDA-Public Use
  Company Number: US201107002626

PATIENT
  Age: 62 Year
  Sex: Female
  Weight: 84.8 kg

DRUGS (11)
  1. ZETIA [Concomitant]
  2. CALCIUM CARBONATE [Concomitant]
  3. HUMALOG (INSULING LISPRO) [Concomitant]
  4. LANTUS [Concomitant]
  5. LOVAZA [Concomitant]
  6. ASPIRIN [Concomitant]
  7. BYETTA [Suspect]
     Indication: TYPE 2 DIABETES MELLITUS
     Dosage: 5 UG, BID, SUBCUTANEOUS, 10 UG, BID, SUBCUTANEOUS
     Route: 058
     Dates: end: 20110626
  8. ZOCOR [Concomitant]
  9. GLUMETZA [Concomitant]
  10. TYLENOL /00020001/(PARACETAMOL) [Concomitant]
  11. DIOVAN [Concomitant]

REACTIONS (9)
  - AGEUSIA [None]
  - OFF LABEL USE [None]
  - ENZYME ABNORMALITY [None]
  - ANOSMIA [None]
  - ABDOMINAL DISTENSION [None]
  - CHEST PAIN [None]
  - ABDOMINAL PAIN UPPER [None]
  - PANCREATITIS [None]
  - WEIGHT DECREASED [None]
